FAERS Safety Report 23550845 (Version 1)
Quarter: 2024Q1

REPORT INFORMATION
  Report Type: Report from Study
  Country: US (occurrence: CA)
  Receive Date: 20240221
  Receipt Date: 20240221
  Transmission Date: 20240410
  Serious: Yes (Other)
  Sender: FDA-Public Use
  Company Number: CA-ABBVIE-5645500

PATIENT
  Sex: Male
  Weight: 72.5 kg

DRUGS (2)
  1. SKYRIZI [Suspect]
     Active Substance: RISANKIZUMAB-RZAA
     Indication: Crohn^s disease
     Route: 058
     Dates: start: 20230209
  2. NEXIUM [Concomitant]
     Active Substance: ESOMEPRAZOLE MAGNESIUM
     Indication: Product used for unknown indication

REACTIONS (8)
  - Intestinal stenosis [Unknown]
  - Diarrhoea [Unknown]
  - Cholelithiasis [Not Recovered/Not Resolved]
  - Arthralgia [Unknown]
  - Malaise [Unknown]
  - Impaired work ability [Unknown]
  - Social problem [Unknown]
  - Device issue [Unknown]

NARRATIVE: CASE EVENT DATE: 20240209
